FAERS Safety Report 4666582-X (Version None)
Quarter: 2005Q2

REPORT INFORMATION
  Report Type: 
  Country: None (occurrence: None)
  Receive Date: 20050518
  Receipt Date: 20050505
  Transmission Date: 20051028
  Serious: Yes (Hospitalization)
  Sender: FDA-Public Use
  Company Number: 2004240747US

PATIENT
  Age: 71 Year
  Sex: Female

DRUGS (10)
  1. BEXTRA [Suspect]
     Indication: OSTEOARTHRITIS
     Dosage: 20 MG (QD)
     Dates: start: 20040101, end: 20040101
  2. FUROSEMIDE [Concomitant]
  3. IRBESASRTAN (IRBESARTAN) [Concomitant]
  4. GLIMEPIRIDE [Concomitant]
  5. ASPIRIN [Concomitant]
  6. LORAZEPAM [Concomitant]
  7. COMBIVENT [Concomitant]
  8. VICODIN [Concomitant]
  9. ALLOPURINOL [Concomitant]
  10. ISOSORBIDE DINITRATE [Concomitant]

REACTIONS (1)
  - STEVENS-JOHNSON SYNDROME [None]
